FAERS Safety Report 14329853 (Version 3)
Quarter: 2018Q2

REPORT INFORMATION
  Report Type: Spontaneous
  Country: JP (occurrence: JP)
  Receive Date: 20171227
  Receipt Date: 20180427
  Transmission Date: 20180711
  Serious: Yes (Hospitalization)
  Sender: FDA-Public Use
  Company Number: JP-PFIZER INC-2017541120

PATIENT
  Age: 59 Year
  Sex: Male

DRUGS (2)
  1. LYRICA [Suspect]
     Active Substance: PREGABALIN
     Dosage: UNK
     Route: 048
     Dates: start: 201711
  2. OPALMON [Concomitant]
     Active Substance: LIMAPROST
     Dosage: UNK
     Route: 048
     Dates: start: 201711

REACTIONS (1)
  - Hepatitis alcoholic [Unknown]

NARRATIVE: CASE EVENT DATE: 201712
